FAERS Safety Report 7647580-0 (Version None)
Quarter: 2011Q3

REPORT INFORMATION
  Report Type: 
  Country: None (occurrence: None)
  Receive Date: 20110801
  Receipt Date: 20110721
  Transmission Date: 20111222
  Serious: Yes (Death)
  Sender: FDA-Public Use
  Company Number: TW-JNJFOC-20110310539

PATIENT

DRUGS (2)
  1. ULTRACET [Suspect]
     Indication: PAIN
     Dosage: 1 TABLET/3 TIMES A DAY
     Route: 048
  2. MORPHINE [Concomitant]
     Indication: ANALGESIC THERAPY
     Route: 065

REACTIONS (2)
  - VOMITING [None]
  - GALLBLADDER PERFORATION [None]
